FAERS Safety Report 5901763-6 (Version None)
Quarter: 2008Q3

REPORT INFORMATION
  Report Type: 
  Country: None (occurrence: None)
  Receive Date: 20080929
  Receipt Date: 20080922
  Transmission Date: 20090109
  Serious: Yes (Hospitalization)
  Sender: FDA-Public Use
  Company Number: PT-BRISTOL-MYERS SQUIBB COMPANY-14349443

PATIENT
  Age: 75 Year
  Sex: Male

DRUGS (6)
  1. GLUCOVANCE [Interacting]
     Indication: DIABETES MELLITUS
     Route: 048
     Dates: end: 20080612
  2. GLIMEPIRIDE [Interacting]
     Indication: DIABETES MELLITUS
     Route: 048
     Dates: end: 20080612
  3. INSULIN HUMAN [Suspect]
     Indication: DIABETES MELLITUS
     Route: 058
  4. TICLOPIDINE HCL [Concomitant]
     Indication: PROPHYLAXIS
     Route: 048
  5. ENALAPRIL MALEATE [Concomitant]
     Indication: HYPERTENSION
     Route: 048
  6. SIMVASTATIN [Concomitant]
     Route: 048

REACTIONS (3)
  - DRUG INTERACTION [None]
  - HYPOGLYCAEMIA [None]
  - SYNCOPE [None]
